FAERS Safety Report 23558462 (Version 1)
Quarter: 2024Q1

REPORT INFORMATION
  Report Type: Report from Study
  Country: US (occurrence: US)
  Receive Date: 20240223
  Receipt Date: 20240223
  Transmission Date: 20240410
  Serious: Yes (Hospitalization, Other)
  Sender: FDA-Public Use
  Company Number: US-SUN PHARMACEUTICAL INDUSTRIES LTD-2023R1-392558

PATIENT
  Sex: Male

DRUGS (2)
  1. CLOZAPINE [Suspect]
     Active Substance: CLOZAPINE
     Indication: Schizoaffective disorder
     Dosage: UNK, 200 MG IN THE MORNING, AND 300 MG AT BEDTIME
     Route: 065
     Dates: start: 202309
  2. CLOZAPINE [Suspect]
     Active Substance: CLOZAPINE
     Indication: Schizophrenia
     Dosage: 200 MG IN THE MORNING, 200 MG AT NOON, AND 100 MG AT 8 PM
     Route: 065

REACTIONS (2)
  - Condition aggravated [Unknown]
  - Hallucination [Recovering/Resolving]
